FAERS Safety Report 18946563 (Version 1)
Quarter: 2021Q1

REPORT INFORMATION
  Report Type: Spontaneous
  Country: US (occurrence: US)
  Receive Date: 20210226
  Receipt Date: 20210226
  Transmission Date: 20210420
  Serious: Yes (Hospitalization, Other)
  Sender: FDA-Public Use
  Company Number: US-BAYER-2021-070792

PATIENT
  Age: 59 Year
  Sex: Female

DRUGS (1)
  1. ALKA?SELTZER HEARTBURN RELIEFCHEWS [Suspect]
     Active Substance: CALCIUM CARBONATE
     Indication: MINERAL SUPPLEMENTATION
     Dosage: UP TO 10 CALCIUM CARBONATE TABLETS SEVERAL TIMES PER DAY

REACTIONS (6)
  - Reversible cerebral vasoconstriction syndrome [Recovering/Resolving]
  - Hypercalcaemia [Recovered/Resolved]
  - Cerebral infarction [Recovering/Resolving]
  - Hypertensive crisis [Recovered/Resolved]
  - Accidental overdose [Recovered/Resolved]
  - Hemiplegia [Recovering/Resolving]
